FAERS Safety Report 25999713 (Version 1)
Quarter: 2025Q4

REPORT INFORMATION
  Report Type: Spontaneous
  Country: BR (occurrence: BR)
  Receive Date: 20251105
  Receipt Date: 20251105
  Transmission Date: 20260117
  Serious: Yes (Hospitalization)
  Sender: MERCK SHARP & DOHME LLC
  Company Number: BR-009507513-2346518

PATIENT
  Age: 28 Year
  Sex: Female

DRUGS (2)
  1. PEMBROLIZUMAB [Suspect]
     Active Substance: PEMBROLIZUMAB
     Indication: Malignant melanoma stage III
     Dosage: 200 MG WAS ADMINISTERED EVERY THREE WEEKS. 3 INFUSIONS TOTAL
     Dates: start: 2022, end: 20220424
  2. DEXAMETHASONE [Concomitant]
     Active Substance: DEXAMETHASONE
     Indication: Nervous system disorder prophylaxis
     Dosage: HIGH DOSES, FOLLOWED BY A GRADUAL DECREASE

REACTIONS (1)
  - Hyperadrenocorticism [Unknown]

NARRATIVE: CASE EVENT DATE: 20220329
